FAERS Safety Report 19454709 (Version 2)
Quarter: 2021Q3

REPORT INFORMATION
  Report Type: Report from Study
  Country: US (occurrence: US)
  Receive Date: 20210623
  Receipt Date: 20210916
  Transmission Date: 20211014
  Serious: Yes (Hospitalization, Other)
  Sender: FDA-Public Use
  Company Number: US-TAKEDA-2021TUS038740

PATIENT
  Sex: Male
  Weight: 81.63 kg

DRUGS (20)
  1. HUMAN NORMAL IMMUNOGLOBULIN; LIQUID [Suspect]
     Active Substance: HUMAN IMMUNOGLOBULIN G
     Indication: SELECTIVE IGG SUBCLASS DEFICIENCY
     Dosage: 8 GRAM, 1/WEEK
     Route: 058
     Dates: start: 20170123
  2. SIMVASTATIN. [Concomitant]
     Active Substance: SIMVASTATIN
  3. SINGULAIR [Concomitant]
     Active Substance: MONTELUKAST SODIUM
  4. SPIRIVA [Concomitant]
     Active Substance: TIOTROPIUM BROMIDE MONOHYDRATE
  5. VALSARTAN. [Concomitant]
     Active Substance: VALSARTAN
  6. DALIRESP [Concomitant]
     Active Substance: ROFLUMILAST
  7. ACETAMINOPHEN. [Concomitant]
     Active Substance: ACETAMINOPHEN
  8. PREDNISONE. [Concomitant]
     Active Substance: PREDNISONE
  9. COENZYME Q10 [Concomitant]
     Active Substance: DIETARY SUPPLEMENT\UBIDECARENONE
  10. EPINEPHRINE. [Concomitant]
     Active Substance: EPINEPHRINE
  11. AUGMENTIN [Concomitant]
     Active Substance: AMOXICILLIN\CLAVULANATE POTASSIUM
  12. CENTRUM [Concomitant]
     Active Substance: VITAMINS
  13. MUCINEX [Concomitant]
     Active Substance: GUAIFENESIN
  14. SYMBICORT [Concomitant]
     Active Substance: BUDESONIDE\FORMOTEROL FUMARATE DIHYDRATE
  15. DIPHENHYDRAMINE. [Concomitant]
     Active Substance: DIPHENHYDRAMINE
  16. NORVASC [Concomitant]
     Active Substance: AMLODIPINE BESYLATE
  17. OXYGEN. [Concomitant]
     Active Substance: OXYGEN
  18. LIDOCAINE. [Concomitant]
     Active Substance: LIDOCAINE
  19. PRESERVISION [Concomitant]
     Active Substance: MINERALS\VITAMINS
  20. LEVAQUIN [Concomitant]
     Active Substance: LEVOFLOXACIN

REACTIONS (1)
  - Prostate cancer [Unknown]
